FAERS Safety Report 10226707 (Version 1)
Quarter: 2014Q2

REPORT INFORMATION
  Report Type: Spontaneous
  Country: PL (occurrence: PL)
  Receive Date: 20140610
  Receipt Date: 20140610
  Transmission Date: 20141212
  Serious: Yes (Hospitalization, Other)
  Sender: FDA-Public Use
  Company Number: PL-DRREDDYS-GER/POL/14/0040861

PATIENT
  Age: 17 Year
  Sex: Female

DRUGS (3)
  1. AMLODIPINE [Suspect]
     Indication: PRODUCT USED FOR UNKNOWN INDICATION
  2. CAPTOPRIL [Suspect]
     Indication: PRODUCT USED FOR UNKNOWN INDICATION
  3. BISOPROLOL [Suspect]
     Indication: PRODUCT USED FOR UNKNOWN INDICATION

REACTIONS (13)
  - Intentional overdose [Unknown]
  - Suicide attempt [Unknown]
  - Toxicity to various agents [Recovered/Resolved]
  - Cardiac failure acute [Recovered/Resolved]
  - Metabolic acidosis [Recovered/Resolved]
  - Hyperglycaemia [Recovered/Resolved]
  - Multi-organ failure [Recovered/Resolved]
  - Abdominal pain [Unknown]
  - Dizziness [Unknown]
  - Asthenia [Unknown]
  - Hypothermia [Unknown]
  - Cyanosis [Unknown]
  - Pulmonary oedema [Unknown]
